FAERS Safety Report 6238940-3 (Version None)
Quarter: 2009Q2

REPORT INFORMATION
  Report Type: 
  Country: None (occurrence: None)
  Receive Date: 20090622
  Receipt Date: 20090609
  Transmission Date: 20091009
  Serious: Yes (Other)
  Sender: FDA-Public Use
  Company Number: FR-ELI_LILLY_AND_COMPANY-FR200906002274

PATIENT
  Sex: Male

DRUGS (5)
  1. GEMZAR [Suspect]
     Indication: PANCREATIC CARCINOMA
     Dosage: 1000 MG/M2, WEEKLY (1/W)
     Route: 042
     Dates: start: 20080617, end: 20080826
  2. LYRICA [Concomitant]
     Indication: PAIN
     Dosage: 2 D/F, DAILY (1/D)
     Route: 048
     Dates: start: 20080617
  3. CREON [Concomitant]
     Indication: DIABETES MELLITUS
     Dates: start: 20080617
  4. LANTUS [Concomitant]
     Indication: DIABETES MELLITUS
     Dates: start: 20080617
  5. APIDRA [Concomitant]

REACTIONS (4)
  - DIARRHOEA [None]
  - MUSCLE SPASMS [None]
  - MYOSITIS [None]
  - PYREXIA [None]
